FAERS Safety Report 14557978 (Version 3)
Quarter: 2018Q2

REPORT INFORMATION
  Report Type: Spontaneous
  Country: US (occurrence: US)
  Receive Date: 20180221
  Receipt Date: 20180426
  Transmission Date: 20180711
  Serious: Yes (Life-Threatening, Hospitalization, Other)
  Sender: FDA-Public Use
  Company Number: US-DRREDDYS-USA/USA/18/0096325

PATIENT
  Age: 49 Year
  Sex: Female

DRUGS (38)
  1. VALPROIC ACID. [Interacting]
     Active Substance: VALPROIC ACID
     Dosage: EXTENDED RELEASE
  2. HALOPERIDOL. [Suspect]
     Active Substance: HALOPERIDOL
  3. LORAZEPAM. [Concomitant]
     Active Substance: LORAZEPAM
  4. OLANZAPINE TABLETS 2.5 MG, 5 MG, 7.5 MG, 10 MG [Suspect]
     Active Substance: OLANZAPINE
     Indication: SCHIZOAFFECTIVE DISORDER BIPOLAR TYPE
     Route: 065
  5. RISPERIDONE TABLETS [Suspect]
     Active Substance: RISPERIDONE
     Route: 065
  6. VALPROIC ACID. [Interacting]
     Active Substance: VALPROIC ACID
     Dosage: NIGHTLY
  7. SERTRALINE HYDROCHLORIDE. [Suspect]
     Active Substance: SERTRALINE HYDROCHLORIDE
     Indication: PRODUCT USED FOR UNKNOWN INDICATION
     Route: 065
  8. CLOZAPINE. [Interacting]
     Active Substance: CLOZAPINE
     Dosage: NIGHTLY
  9. HALOPERIDOL. [Suspect]
     Active Substance: HALOPERIDOL
  10. DIPHENHYDRAMINE. [Concomitant]
     Active Substance: DIPHENHYDRAMINE
     Indication: SCHIZOAFFECTIVE DISORDER
     Route: 065
  11. DIPHENHYDRAMINE. [Concomitant]
     Active Substance: DIPHENHYDRAMINE
  12. CHLORPROMAZINE. [Concomitant]
     Active Substance: CHLORPROMAZINE
     Indication: PRODUCT USED FOR UNKNOWN INDICATION
     Route: 065
  13. LORAZEPAM. [Concomitant]
     Active Substance: LORAZEPAM
     Indication: PRODUCT USED FOR UNKNOWN INDICATION
  14. CLOZAPINE. [Interacting]
     Active Substance: CLOZAPINE
     Dosage: NIGHTLY
  15. HALOPERIDOL. [Suspect]
     Active Substance: HALOPERIDOL
     Dosage: 2.5 MG IN THE AFTERNOON
  16. FLUPHENAZINE [Suspect]
     Active Substance: FLUPHENAZINE
     Indication: SCHIZOAFFECTIVE DISORDER BIPOLAR TYPE
  17. DIPHENHYDRAMINE. [Concomitant]
     Active Substance: DIPHENHYDRAMINE
  18. RISPERIDONE TABLETS [Suspect]
     Active Substance: RISPERIDONE
     Dosage: NIGHTLY
     Route: 065
  19. CLOZAPINE. [Interacting]
     Active Substance: CLOZAPINE
     Dosage: NIGHTLY
  20. HALOPERIDOL. [Suspect]
     Active Substance: HALOPERIDOL
     Indication: SCHIZOAFFECTIVE DISORDER BIPOLAR TYPE
  21. CHLORPROMAZINE. [Concomitant]
     Active Substance: CHLORPROMAZINE
  22. LORAZEPAM. [Concomitant]
     Active Substance: LORAZEPAM
  23. LORAZEPAM. [Concomitant]
     Active Substance: LORAZEPAM
  24. CLOZAPINE. [Interacting]
     Active Substance: CLOZAPINE
     Indication: SCHIZOAFFECTIVE DISORDER BIPOLAR TYPE
     Dosage: NIGHTLY
  25. CLOZAPINE. [Interacting]
     Active Substance: CLOZAPINE
     Dosage: NIGHTLY
  26. CLOZAPINE. [Interacting]
     Active Substance: CLOZAPINE
     Dosage: NIGHTLY
  27. CLOZAPINE. [Interacting]
     Active Substance: CLOZAPINE
     Dosage: NIGHTLY
  28. FLUPHENAZINE [Suspect]
     Active Substance: FLUPHENAZINE
  29. BENZTROPINE. [Concomitant]
     Active Substance: BENZTROPINE
     Indication: SCHIZOAFFECTIVE DISORDER BIPOLAR TYPE
  30. LORAZEPAM. [Concomitant]
     Active Substance: LORAZEPAM
  31. VALPROIC ACID. [Interacting]
     Active Substance: VALPROIC ACID
     Dosage: NIGHTLY
  32. RISPERDAL CONSTA [Suspect]
     Active Substance: RISPERIDONE
     Indication: SCHIZOAFFECTIVE DISORDER BIPOLAR TYPE
     Route: 030
  33. DIPHENHYDRAMINE. [Concomitant]
     Active Substance: DIPHENHYDRAMINE
  34. RISPERIDONE TABLETS [Suspect]
     Active Substance: RISPERIDONE
     Indication: SCHIZOAFFECTIVE DISORDER BIPOLAR TYPE
     Route: 065
  35. VALPROIC ACID. [Interacting]
     Active Substance: VALPROIC ACID
     Indication: SCHIZOAFFECTIVE DISORDER BIPOLAR TYPE
     Dosage: MORNING
     Route: 065
  36. CLOZAPINE. [Interacting]
     Active Substance: CLOZAPINE
     Dosage: NIGHTLY
  37. HALOPERIDOL. [Suspect]
     Active Substance: HALOPERIDOL
     Dosage: 5 MG NIGHTLY
  38. BENZTROPINE. [Concomitant]
     Active Substance: BENZTROPINE

REACTIONS (14)
  - Agitation [Unknown]
  - Sepsis [Recovering/Resolving]
  - Salivary hypersecretion [Unknown]
  - Torsade de pointes [Recovered/Resolved]
  - Sedation [Recovering/Resolving]
  - Drug interaction [Unknown]
  - Cardiac arrest [Recovered/Resolved]
  - Psychotic disorder [Unknown]
  - Electrocardiogram QT prolonged [Recovered/Resolved]
  - Metabolic disorder [Recovered/Resolved]
  - Hallucination, auditory [Recovering/Resolving]
  - Pneumonia aspiration [Recovering/Resolving]
  - Paranoia [Recovering/Resolving]
  - Schizophrenia [Recovering/Resolving]
